FAERS Safety Report 11803255 (Version 7)
Quarter: 2021Q2

REPORT INFORMATION
  Report Type: Report from Study
  Country: JP (occurrence: JP)
  Receive Date: 20151204
  Receipt Date: 20210430
  Transmission Date: 20210716
  Serious: Yes (Hospitalization)
  Sender: FDA-Public Use
  Company Number: JP-SEATTLE GENETICS-2015SGN01598

PATIENT
  Age: 38 Year
  Sex: Female
  Weight: 51.6 kg

DRUGS (32)
  1. BRENTUXIMAB VEDOTIN?MPI [Suspect]
     Active Substance: BRENTUXIMAB VEDOTIN
     Indication: HODGKIN^S DISEASE
     Dosage: 66 MILLIGRAM, Q2WEEKS
     Route: 042
     Dates: start: 20150916, end: 20150916
  2. DACARBAZINE. [Suspect]
     Active Substance: DACARBAZINE
     Dosage: UNK, Q2WEEKS
     Route: 042
     Dates: start: 20151006, end: 20151102
  3. ATOVAQUONE. [Suspect]
     Active Substance: ATOVAQUONE
     Indication: ANTIFUNGAL PROPHYLAXIS
     Dosage: UNK
     Route: 048
     Dates: start: 20160412, end: 20160423
  4. LANSOPRAZOLE. [Concomitant]
     Active Substance: LANSOPRAZOLE
     Indication: PROPHYLAXIS AGAINST GASTROINTESTINAL ULCER
     Dosage: 15 MG, QD
     Route: 048
     Dates: start: 20150901
  5. OLOPATADINE HYDROCHLORIDE. [Concomitant]
     Active Substance: OLOPATADINE HYDROCHLORIDE
     Indication: PRURITUS
     Dosage: 5 MG, BID
     Route: 048
     Dates: start: 20150901
  6. BRENTUXIMAB VEDOTIN?MPI [Suspect]
     Active Substance: BRENTUXIMAB VEDOTIN
     Dosage: 49 MILLIGRAM, Q2WEEKS
     Route: 042
     Dates: start: 20151208, end: 20160315
  7. DOXORUBICIN [Suspect]
     Active Substance: DOXORUBICIN
     Dosage: UNK, Q2WEEKS
     Route: 042
     Dates: start: 20151006, end: 20151102
  8. DERMOVATE [Concomitant]
     Active Substance: CLOBETASOL
     Indication: PRURITUS
     Dosage: UNK
     Route: 062
     Dates: start: 201502
  9. CALONAL [Concomitant]
     Active Substance: ACETAMINOPHEN
     Indication: ARTHRALGIA
     Dosage: 400 MG, UNK
     Route: 048
     Dates: start: 20150922
  10. DOXORUBICIN [Suspect]
     Active Substance: DOXORUBICIN
     Dosage: UNK, Q2WEEKS
     Route: 042
     Dates: start: 20151208, end: 20160315
  11. LOXOPROFEN EMEC [Concomitant]
     Active Substance: LOXOPROFEN
     Indication: PYREXIA
  12. CALONAL [Concomitant]
     Active Substance: ACETAMINOPHEN
     Indication: PYREXIA
     Dosage: UNK
     Route: 048
     Dates: start: 20160423, end: 20160428
  13. CIPROFLOXACIN                      /00697202/ [Concomitant]
     Active Substance: CIPROFLOXACIN HYDROCHLORIDE
     Dosage: UNK
     Route: 048
     Dates: start: 20160423, end: 20160428
  14. DOXORUBICIN [Suspect]
     Active Substance: DOXORUBICIN
     Indication: HODGKIN^S DISEASE
     Dosage: UNK, Q2WEEKS
     Route: 042
     Dates: start: 20150916, end: 20150916
  15. OLOPATADINE HYDROCHLORIDE. [Concomitant]
     Active Substance: OLOPATADINE HYDROCHLORIDE
     Indication: RASH MACULO-PAPULAR
  16. CIPROFLOXACIN                      /00697202/ [Concomitant]
     Active Substance: CIPROFLOXACIN HYDROCHLORIDE
     Indication: INFECTION PROPHYLAXIS
     Dosage: 200 MG, BID
     Route: 048
     Dates: start: 20150922
  17. VINBLASTINE [Suspect]
     Active Substance: VINBLASTINE
     Indication: HODGKIN^S DISEASE
     Dosage: UNK, Q2WEEKS
     Route: 042
     Dates: start: 20150916, end: 20150916
  18. VINBLASTINE [Suspect]
     Active Substance: VINBLASTINE
     Dosage: UNK, Q2WEEKS
     Route: 042
     Dates: start: 20151006, end: 20151102
  19. BETAMETHASONE, DEXCHLORPHENIRAMINE [Suspect]
     Active Substance: BETAMETHASONE\DEXCHLORPHENIRAMINE
     Indication: RASH MACULO-PAPULAR
     Dosage: 1 DF, TID
     Route: 048
     Dates: start: 20150930, end: 20151019
  20. CODEINE PHOSPHATE [Concomitant]
     Active Substance: CODEINE PHOSPHATE
     Indication: COUGH
     Dosage: 60 MG, TID
     Route: 048
     Dates: start: 20150916
  21. ZOLPIDEM TARTRATE. [Concomitant]
     Active Substance: ZOLPIDEM TARTRATE
     Indication: INSOMNIA
     Dosage: 5 MG, QD
     Route: 048
     Dates: start: 20150913, end: 20160423
  22. VINBLASTINE [Suspect]
     Active Substance: VINBLASTINE
     Dosage: UNK, Q2WEEKS
     Route: 042
     Dates: start: 20151208, end: 20160315
  23. BETAMETHASONE, DEXCHLORPHENIRAMINE [Suspect]
     Active Substance: BETAMETHASONE\DEXCHLORPHENIRAMINE
     Dosage: 1 DF, TID
     Route: 048
     Dates: start: 20151026, end: 20160412
  24. MAGMITT [Concomitant]
     Active Substance: MAGNESIUM OXIDE
     Indication: CONSTIPATION
     Dosage: 330 MG, BID
     Route: 048
     Dates: start: 20150921
  25. MAGMITT [Concomitant]
     Active Substance: MAGNESIUM OXIDE
     Dosage: 330 MG, BID
     Route: 048
     Dates: start: 20150901
  26. FILGRASTIM [Concomitant]
     Active Substance: FILGRASTIM
     Indication: NEUTROPHIL COUNT DECREASED
     Dosage: 75 ?G, QD
     Route: 058
     Dates: start: 20150930, end: 20151001
  27. BRENTUXIMAB VEDOTIN?MPI [Suspect]
     Active Substance: BRENTUXIMAB VEDOTIN
     Dosage: 49 MILLIGRAM, Q2WEEKS
     Route: 042
     Dates: start: 20151006, end: 20151102
  28. DACARBAZINE. [Suspect]
     Active Substance: DACARBAZINE
     Indication: HODGKIN^S DISEASE
     Dosage: UNK, Q2WEEKS
     Route: 042
     Dates: start: 20150916, end: 20150916
  29. DACARBAZINE. [Suspect]
     Active Substance: DACARBAZINE
     Dosage: UNK, Q2WEEKS
     Route: 042
     Dates: start: 20151208, end: 20160315
  30. LOXOPROFEN EMEC [Concomitant]
     Active Substance: LOXOPROFEN
     Indication: PAIN
     Dosage: 60 MG, QD
     Route: 048
     Dates: start: 20150901
  31. RESTAMIN                           /00000401/ [Concomitant]
     Active Substance: DIPHENHYDRAMINE
     Indication: PRURITUS
     Dosage: UNK
     Route: 062
     Dates: start: 20150909
  32. CIPROFLOXACIN                      /00697202/ [Concomitant]
     Active Substance: CIPROFLOXACIN HYDROCHLORIDE
     Indication: UPPER RESPIRATORY TRACT INFLAMMATION
     Dosage: 200 MILLIGRAM, BID
     Route: 048
     Dates: start: 20151115, end: 20151122

REACTIONS (3)
  - Rash maculo-papular [Recovered/Resolved]
  - Pneumocystis jirovecii pneumonia [Recovered/Resolved]
  - Erythema multiforme [Recovered/Resolved]

NARRATIVE: CASE EVENT DATE: 20150930
